FAERS Safety Report 15807640 (Version 4)
Quarter: 2019Q1

REPORT INFORMATION
  Report Type: Spontaneous
  Country: US (occurrence: US)
  Receive Date: 20190110
  Receipt Date: 20190312
  Transmission Date: 20190417
  Serious: No
  Sender: FDA-Public Use
  Company Number: US-B.I. PHARMACEUTICALS,INC./RIDGEFIELD-2019-BI-000575

PATIENT
  Age: 58 Year
  Sex: Female

DRUGS (1)
  1. CATAPRES-TTS [Suspect]
     Active Substance: CLONIDINE
     Indication: HYPERTENSION
     Dosage: STRENGTH: 2.5 MG (0.1 MG / DAY); FORMULATION: PATCH ACTION(S) TAKEN WITH PRODUCT: DOSE NOT CHANGED
     Route: 061
     Dates: start: 2014

REACTIONS (5)
  - Product quality issue [Unknown]
  - Peripheral venous disease [Not Recovered/Not Resolved]
  - Erythema [Unknown]
  - Rash [Not Recovered/Not Resolved]
  - Cellulitis [Not Recovered/Not Resolved]

NARRATIVE: CASE EVENT DATE: 201812
